FAERS Safety Report 9929184 (Version 1)
Quarter: 2014Q1

REPORT INFORMATION
  Report Type: Spontaneous
  Country: US (occurrence: None)
  Receive Date: 20140225
  Receipt Date: 20140225
  Transmission Date: 20141002
  Serious: Yes (Death, Hospitalization)
  Sender: FDA-Public Use
  Company Number: US-ALKEM-000496

PATIENT
  Sex: Female

DRUGS (1)
  1. METFORMIN (METFORMIN) [Suspect]
     Indication: HYPERGLYCAEMIA

REACTIONS (4)
  - Lactic acidosis [None]
  - Cardiac arrest [None]
  - Ventricular tachycardia [None]
  - Myocardial infarction [None]
